FAERS Safety Report 7369169-3 (Version None)
Quarter: 2011Q1

REPORT INFORMATION
  Report Type: 
  Country: None (occurrence: None)
  Receive Date: 20110323
  Receipt Date: 20110318
  Transmission Date: 20110831
  Serious: No
  Sender: FDA-Public Use
  Company Number: US-PFIZER INC-2011060507

PATIENT
  Sex: Female
  Weight: 78.005 kg

DRUGS (4)
  1. NEURONTIN [Suspect]
     Indication: PAIN
     Dosage: 100 MG, 1X/DAY
     Route: 048
  2. NEURONTIN [Suspect]
     Dosage: 300 MG, 2X/DAY
  3. NEURONTIN [Suspect]
     Dosage: 300 MG, 1X/DAY
     Dates: start: 20110301
  4. CELEBREX [Concomitant]
     Indication: PAIN
     Dosage: UNK, 2X/DAY

REACTIONS (2)
  - DRUG INEFFECTIVE [None]
  - BOWEL MOVEMENT IRREGULARITY [None]
